FAERS Safety Report 7388889-8 (Version None)
Quarter: 2011Q2

REPORT INFORMATION
  Report Type: 
  Country: None (occurrence: None)
  Receive Date: 20110401
  Receipt Date: 20110201
  Transmission Date: 20111010
  Serious: Yes (Other)
  Sender: FDA-Public Use
  Company Number: US-BAYER-201029254NA

PATIENT
  Sex: Female
  Weight: 69.841 kg

DRUGS (11)
  1. YASMIN [Suspect]
     Indication: CONTRACEPTION
     Route: 048
     Dates: start: 20050901, end: 20081101
  2. VIBRAMYCIN [DOXYCYCLINE CALCIUM] [Concomitant]
  3. FLOCET [Concomitant]
     Indication: MIGRAINE
     Dosage: UNK
     Dates: start: 20080101
  4. ATENOLOL [Concomitant]
     Indication: HYPERTENSION
     Dosage: UNK
     Dates: start: 20080101
  5. FLAGYL [Concomitant]
     Indication: TRICHINIASIS
     Dosage: UNK
     Dates: start: 20080311
  6. PENICILLIN [Concomitant]
     Dosage: UNK UNK, PRN
  7. OCELLA [Suspect]
     Indication: CONTRACEPTION
  8. YAZ [Suspect]
     Indication: CONTRACEPTION
  9. AMOXICILLIN [Concomitant]
     Dosage: UNK UNK, PRN
  10. ALBUTEROL [Concomitant]
     Indication: ASTHMA
     Dosage: UNK
     Dates: start: 20080101
  11. MOTRIN [Concomitant]

REACTIONS (6)
  - CHOLELITHIASIS [None]
  - PAIN [None]
  - GALLBLADDER PAIN [None]
  - GASTROINTESTINAL DISORDER [None]
  - POST CHOLECYSTECTOMY SYNDROME [None]
  - MIGRAINE [None]
